FAERS Safety Report 14763025 (Version 1)
Quarter: 2018Q2

REPORT INFORMATION
  Report Type: Report from Study
  Country: None (occurrence: CA)
  Receive Date: 20180416
  Receipt Date: 20180416
  Transmission Date: 20180711
  Serious: Yes (Hospitalization, Other)
  Sender: FDA-Public Use
  Company Number: CA-ABBVIE-18K-028-2321228-00

PATIENT
  Age: 30 Year
  Sex: Female

DRUGS (1)
  1. HUMIRA [Suspect]
     Active Substance: ADALIMUMAB
     Indication: CROHN^S DISEASE
     Route: 058
     Dates: start: 20171125, end: 2018

REACTIONS (9)
  - Respiratory tract congestion [Not Recovered/Not Resolved]
  - Throat tightness [Unknown]
  - Nasopharyngitis [Unknown]
  - Hypersensitivity [Not Recovered/Not Resolved]
  - Skin plaque [Unknown]
  - Rash [Unknown]
  - Seasonal allergy [Not Recovered/Not Resolved]
  - Sneezing [Unknown]
  - Bronchitis [Unknown]

NARRATIVE: CASE EVENT DATE: 201711
